FAERS Safety Report 8835501 (Version 5)
Quarter: 2013Q4

REPORT INFORMATION
  Report Type: Spontaneous
  Country: US (occurrence: US)
  Receive Date: 20121011
  Receipt Date: 20131220
  Transmission Date: 20140711
  Serious: Yes (Hospitalization, Disabling, Other)
  Sender: FDA-Public Use
  Company Number: US-009507513-1210USA002464

PATIENT
  Sex: Female

DRUGS (5)
  1. FOSAMAX [Suspect]
     Indication: OSTEOPOROSIS PROPHYLAXIS
     Dosage: 70 MG, QW
     Route: 048
     Dates: start: 2004, end: 2011
  2. FOSAMAX [Suspect]
     Indication: OSTEOPOROSIS
  3. FOSAMAX [Suspect]
     Dosage: UNK
     Route: 048
  4. FOSAMAX PLUS D [Suspect]
     Dosage: UNK
     Route: 048
  5. HORMONES (UNSPECIFIED) [Concomitant]
     Dosage: UNK
     Dates: start: 2001

REACTIONS (17)
  - Femur fracture [Not Recovered/Not Resolved]
  - Hip arthroplasty [Unknown]
  - Haemorrhagic anaemia [Not Recovered/Not Resolved]
  - Urinary tract infection [Unknown]
  - Urinary retention [Unknown]
  - Femur fracture [Not Recovered/Not Resolved]
  - Internal fixation of fracture [Not Recovered/Not Resolved]
  - Urinary tract infection bacterial [Unknown]
  - Pneumonia [Unknown]
  - Low turnover osteopathy [Not Recovered/Not Resolved]
  - Adverse event [Unknown]
  - Hypothyroidism [Unknown]
  - Glaucoma [Unknown]
  - Uterine operation [Unknown]
  - Hypoalbuminaemia [Unknown]
  - Protein urine present [Unknown]
  - Diarrhoea [Unknown]
